FAERS Safety Report 9065548 (Version 1)
Quarter: 2013Q1

REPORT INFORMATION
  Report Type: Report from Study
  Country: US (occurrence: US)
  Receive Date: 20130131
  Receipt Date: 20130131
  Transmission Date: 20140127
  Serious: No
  Sender: FDA-Public Use
  Company Number: US-ABBOTT-12P-163-1023245-00

PATIENT
  Sex: Female
  Weight: 61.29 kg

DRUGS (4)
  1. HUMIRA [Suspect]
     Indication: PSORIATIC ARTHROPATHY
     Route: 058
     Dates: start: 2010
  2. MULTIVITAMIN [Concomitant]
     Indication: ROUTINE HEALTH MAINTENANCE
  3. ZYRTEC [Concomitant]
     Indication: ASTHMA
  4. UNKNOWN INHALER [Concomitant]
     Indication: ASTHMA

REACTIONS (2)
  - Rhinorrhoea [Not Recovered/Not Resolved]
  - Nasopharyngitis [Not Recovered/Not Resolved]
